FAERS Safety Report 20125944 (Version 1)
Quarter: 2021Q4

REPORT INFORMATION
  Report Type: Report from Study
  Country: IT (occurrence: IT)
  Receive Date: 20211129
  Receipt Date: 20211129
  Transmission Date: 20220304
  Serious: Yes (Other)
  Sender: FDA-Public Use
  Company Number: IT-MYLANLABS-2021M1087571

PATIENT
  Age: 25 Year
  Sex: Female

DRUGS (4)
  1. MYCOPHENOLATE MOFETIL [Suspect]
     Active Substance: MYCOPHENOLATE MOFETIL
     Indication: Prophylaxis against graft versus host disease
     Dosage: 15 MILLIGRAM/KILOGRAM, BID (FROM DAY 1 TO DAY 28 OF TRANSPLANTATION)
     Route: 065
  2. LETERMOVIR [Suspect]
     Active Substance: LETERMOVIR
     Indication: Antiviral prophylaxis
     Dosage: 240 MILLIGRAM, QD (FROM DAY 7 OF THE TRANSPLANTATION TO DAY 100)
     Route: 065
  3. CYCLOSPORINE [Suspect]
     Active Substance: CYCLOSPORINE
     Indication: Prophylaxis against graft versus host disease
     Dosage: 1 MILLIGRAM/KILOGRAM (FROM DAY 1 TO DAY 21 OF TRANSPLANTATION)
     Route: 042
  4. CYCLOSPORINE [Suspect]
     Active Substance: CYCLOSPORINE
     Indication: Prophylaxis against graft versus host disease
     Dosage: 8 MILLIGRAM/KILOGRAM (FOR 6 MONTHS)
     Route: 048

REACTIONS (1)
  - Drug ineffective [Unknown]
